FAERS Safety Report 19367663 (Version 1)
Quarter: 2021Q2

REPORT INFORMATION
  Report Type: Spontaneous
  Country: US (occurrence: US)
  Receive Date: 20210602
  Receipt Date: 20210602
  Transmission Date: 20210717
  Serious: Yes (Other)
  Sender: FDA-Public Use
  Company Number: US-ROCHE-2661706

PATIENT
  Sex: Female
  Weight: 61.29 kg

DRUGS (7)
  1. OCREVUS [Suspect]
     Active Substance: OCRELIZUMAB
     Indication: MULTIPLE SCLEROSIS
     Route: 042
  2. ALPHA LIPOIC ACID [Concomitant]
     Active Substance: .ALPHA.-LIPOIC ACID
  3. LEVOTHYROXINE. [Concomitant]
     Active Substance: LEVOTHYROXINE
     Indication: AUTOIMMUNE THYROIDITIS
     Route: 048
  4. PREDNISONE. [Concomitant]
     Active Substance: PREDNISONE
     Route: 048
  5. BIOTINE [BIOTIN] [Concomitant]
     Active Substance: BIOTIN
     Route: 048
  6. CRANBERRY. [Concomitant]
     Active Substance: CRANBERRY
     Route: 048
  7. PREDNISONE. [Concomitant]
     Active Substance: PREDNISONE
     Indication: MULTIPLE SCLEROSIS
     Dosage: DAY 1?6 TABS, DAY 2?6 TABS, DAY 3 5 TABS ;ONGOING: NO
     Route: 048

REACTIONS (4)
  - Drug ineffective [Unknown]
  - Dysstasia [Unknown]
  - Limb discomfort [Unknown]
  - Gait disturbance [Not Recovered/Not Resolved]
